FAERS Safety Report 22209926 (Version 3)
Quarter: 2023Q2

REPORT INFORMATION
  Report Type: Spontaneous
  Country: BR (occurrence: BR)
  Receive Date: 20230414
  Receipt Date: 20230424
  Transmission Date: 20230721
  Serious: Yes (Hospitalization, Other)
  Sender: FDA-Public Use
  Company Number: BR-CELLTRION INC.-2023BR007602

PATIENT

DRUGS (4)
  1. INFLIXIMAB [Suspect]
     Active Substance: INFLIXIMAB
     Indication: Product used for unknown indication
     Dosage: UNK
     Route: 042
     Dates: start: 20220811
  2. SIMVASTATIN [Concomitant]
     Active Substance: SIMVASTATIN
  3. CLONAZEPAM [Concomitant]
     Active Substance: CLONAZEPAM
  4. PAROXETINE [Concomitant]
     Active Substance: PAROXETINE

REACTIONS (4)
  - Crohn^s disease [Unknown]
  - Anxiety [Unknown]
  - Depression [Unknown]
  - Intentional dose omission [Unknown]
